FAERS Safety Report 15814441 (Version 1)
Quarter: 2019Q1

REPORT INFORMATION
  Report Type: Spontaneous
  Country: US (occurrence: US)
  Receive Date: 20190111
  Receipt Date: 20190111
  Transmission Date: 20190417
  Serious: No
  Sender: FDA-Public Use
  Company Number: US-BIOGEN-2019BI00681775

PATIENT
  Age: 11 Month
  Sex: Male

DRUGS (1)
  1. SPINRAZA [Suspect]
     Active Substance: NUSINERSEN
     Indication: SPINAL MUSCULAR ATROPHY
     Route: 037

REACTIONS (4)
  - Ephelides [Not Recovered/Not Resolved]
  - Skin induration [Not Recovered/Not Resolved]
  - Pigmentation disorder [Unknown]
  - Scab [Recovered/Resolved]

NARRATIVE: CASE EVENT DATE: 201812
